FAERS Safety Report 7844194 (Version 4)
Quarter: 2013Q4

REPORT INFORMATION
  Report Type: Report from Study
  Country: CA (occurrence: CA)
  Receive Date: 20110307
  Receipt Date: 20131203
  Transmission Date: 20140711
  Serious: Yes (Death)
  Sender: FDA-Public Use
  Company Number: CA-PFIZER INC-2011045920

PATIENT
  Sex: Female

DRUGS (1)
  1. SUTENT [Suspect]
     Indication: SYNOVIAL SARCOMA
     Dosage: 25 MG, CYCLIC (4 CYCLES)
     Dates: start: 20100913

REACTIONS (1)
  - Death [Fatal]
